FAERS Safety Report 9921697 (Version 2)
Quarter: 2014Q1

REPORT INFORMATION
  Report Type: Spontaneous
  Country: IT (occurrence: GB)
  Receive Date: 20140225
  Receipt Date: 20140226
  Transmission Date: 20141002
  Serious: Yes (Death, Other)
  Sender: FDA-Public Use
  Company Number: GB-PFIZER INC-2014053781

PATIENT
  Age: 39 Year
  Sex: Female

DRUGS (2)
  1. TRANEXAMIC ACID [Suspect]
     Indication: ANGIOEDEMA
     Dosage: 6 G, DAILY
     Dates: start: 1970, end: 1971
  2. TRANEXAMIC ACID [Suspect]
     Dosage: 6 G, DAILY
     Dates: start: 1974, end: 197502

REACTIONS (2)
  - Cerebral thrombosis [Fatal]
  - Arteritis [Not Recovered/Not Resolved]
